FAERS Safety Report 7613034-0 (Version None)
Quarter: 2011Q3

REPORT INFORMATION
  Report Type: 
  Country: None (occurrence: None)
  Receive Date: 20110708
  Receipt Date: 20110629
  Transmission Date: 20111222
  Serious: Yes (Other)
  Sender: FDA-Public Use
  Company Number: 937120

PATIENT
  Age: 62 Year
  Sex: Female
  Weight: 73 kg

DRUGS (3)
  1. LEUCOVORIN CALCIUM [Concomitant]
  2. FLUOROURACIL [Concomitant]
  3. OXALIPLATIN [Suspect]
     Indication: BILIARY TRACT DISORDER
     Dosage: 85 MG/M2 MILLIGRAM(S)/SQ. METER, INTRAVENOUS DRIP
     Route: 041
     Dates: start: 20110523, end: 20110523

REACTIONS (1)
  - TREMOR [None]
